FAERS Safety Report 8905509 (Version 1)
Quarter: 2012Q4

REPORT INFORMATION
  Report Type: 
  Country: LB (occurrence: LB)
  Receive Date: 20121111
  Receipt Date: 20121111
  Transmission Date: 20130627
  Serious: No
  Sender: FDA-Public Use
  Company Number: PHHY2012LB103483

PATIENT
  Age: 86 Year
  Sex: Male

DRUGS (12)
  1. TASIGNA [Suspect]
     Indication: CHRONIC MYELOID LEUKAEMIA
     Dosage: 600 mg, QD
     Route: 048
     Dates: start: 20120201
  2. ULSTOP [Concomitant]
     Dosage: 1 DF, QD
  3. ASPICOR [Concomitant]
     Dosage: 1 DF, QD
  4. CONCOR [Concomitant]
     Dosage: 1 DF, QD
  5. TRITACE [Concomitant]
     Dosage: 1 DF, QD
     Route: 048
  6. VIMPOZINES [Concomitant]
  7. CHONDROMES [Concomitant]
     Dosage: 1 DF, QD
     Route: 048
  8. SILOSIN [Concomitant]
     Dosage: 1 DF, QD
     Route: 048
  9. VASTAREL [Concomitant]
     Dosage: 1 DF, Q12H
     Route: 048
  10. LIPONORM [Concomitant]
     Dosage: 1 DF, QD
     Route: 048
  11. ZALDIAR [Concomitant]
  12. AIRTAL [Concomitant]

REACTIONS (2)
  - Gastrointestinal fungal infection [Recovering/Resolving]
  - Haematocrit decreased [Not Recovered/Not Resolved]
